FAERS Safety Report 18619811 (Version 1)
Quarter: 2020Q4

REPORT INFORMATION
  Report Type: Spontaneous
  Country: US (occurrence: US)
  Receive Date: 20201215
  Receipt Date: 20201215
  Transmission Date: 20210114
  Serious: No
  Sender: FDA-Public Use
  Company Number: US-TEVA-2020-US-1859126

PATIENT
  Age: 68 Year
  Sex: Female
  Weight: 90.72 kg

DRUGS (8)
  1. NAPROXEN BAYER [Concomitant]
     Dosage: PRESCRIPTION FOR 900 MG
     Route: 065
  2. GABAPENTIN. [Suspect]
     Active Substance: GABAPENTIN
     Dosage: 1800 MILLIGRAM DAILY;
     Route: 065
  3. ACETAMINOPHEN. [Concomitant]
     Active Substance: ACETAMINOPHEN
     Route: 065
  4. BACLOFEN. [Suspect]
     Active Substance: BACLOFEN
     Indication: BACK PAIN
     Dosage: 30 MILLIGRAM DAILY; ONE TAB THREE TIMES A DAY AS NEEDED FOR PAIN
     Route: 065
     Dates: start: 20201125
  5. METHOCARBAMOL. [Concomitant]
     Active Substance: METHOCARBAMOL
     Dosage: 2250 MILLIGRAM DAILY;
     Route: 065
  6. DULOXETINE AJANTA [Concomitant]
     Indication: PAIN
     Dosage: 600 MILLIGRAM DAILY;
     Route: 065
  7. ALEEVE NAPROXEN [Concomitant]
     Dosage: TAKES TWO TABLETS, THREE TIMES A DAY
     Route: 065
  8. C-NALTREXONE [Concomitant]
     Indication: FIBROMYALGIA
     Dosage: 4.5 MILLIGRAM DAILY;
     Route: 065

REACTIONS (5)
  - Therapeutic product effect incomplete [Unknown]
  - Motor dysfunction [Unknown]
  - Tremor [Unknown]
  - Gait disturbance [Unknown]
  - Dysstasia [Unknown]

NARRATIVE: CASE EVENT DATE: 2019
